FAERS Safety Report 11345186 (Version 1)
Quarter: 2015Q3

REPORT INFORMATION
  Report Type: Spontaneous
  Country: CA (occurrence: CA)
  Receive Date: 20150806
  Receipt Date: 20150806
  Transmission Date: 20151125
  Serious: Yes (Hospitalization)
  Sender: FDA-Public Use
  Company Number: CA-CELGENE-CAN-2015075240

PATIENT
  Age: 47 Year
  Sex: Male
  Weight: 96 kg

DRUGS (8)
  1. OTEZLA [Suspect]
     Active Substance: APREMILAST
     Indication: PSORIASIS
     Route: 048
     Dates: start: 20150603
  2. SORIATANE [Concomitant]
     Active Substance: ACITRETIN
     Indication: ARTHRITIS
     Route: 065
  3. OTEZLA [Suspect]
     Active Substance: APREMILAST
     Route: 048
     Dates: start: 201507
  4. SORIATANE [Concomitant]
     Active Substance: ACITRETIN
     Indication: DRUG INTERACTION
  5. BETNOVATE [Concomitant]
     Active Substance: BETAMETHASONE
     Indication: PRODUCT USED FOR UNKNOWN INDICATION
     Route: 065
  6. TAR [Concomitant]
     Active Substance: TAR
     Indication: PRODUCT USED FOR UNKNOWN INDICATION
     Route: 065
  7. DOVOBET [Concomitant]
     Active Substance: BETAMETHASONE\CALCIPOTRIENE
     Indication: PRODUCT USED FOR UNKNOWN INDICATION
     Route: 065
  8. DOVONEX [Concomitant]
     Active Substance: CALCIPOTRIENE
     Indication: PRODUCT USED FOR UNKNOWN INDICATION
     Route: 065

REACTIONS (1)
  - Unevaluable event [Unknown]

NARRATIVE: CASE EVENT DATE: 20150717
